FAERS Safety Report 4783182-1 (Version None)
Quarter: 2005Q3

REPORT INFORMATION
  Report Type: 
  Country: None (occurrence: None)
  Receive Date: 20050929
  Receipt Date: 20041028
  Transmission Date: 20060218
  Serious: Yes (Other)
  Sender: FDA-Public Use
  Company Number: FI-GLAXOSMITHKLINE-B0350386A

PATIENT
  Sex: Female

DRUGS (3)
  1. LAMOTRIGINE [Suspect]
     Indication: EPILEPSY
     Dates: start: 20040808
  2. TEGRETOL [Concomitant]
     Dosage: 1000MG PER DAY
  3. DEPAKOTE [Concomitant]
     Dosage: 1500MG PER DAY

REACTIONS (1)
  - ABORTION SPONTANEOUS [None]
